FAERS Safety Report 6782861-4 (Version None)
Quarter: 2010Q2

REPORT INFORMATION
  Report Type: 
  Country: None (occurrence: None)
  Receive Date: 20100621
  Receipt Date: 20100614
  Transmission Date: 20101027
  Serious: Yes (Hospitalization, Other)
  Sender: FDA-Public Use
  Company Number: US-ABBOTT-10P-163-0652004-00

PATIENT
  Sex: Female
  Weight: 55.388 kg

DRUGS (9)
  1. HUMIRA [Suspect]
     Indication: CROHN'S DISEASE
     Route: 058
     Dates: start: 20040101, end: 20090101
  2. HUMIRA [Suspect]
     Route: 058
     Dates: start: 20090801, end: 20090801
  3. HUMIRA [Suspect]
     Route: 058
     Dates: start: 20090801, end: 20090901
  4. HUMIRA [Suspect]
     Route: 058
     Dates: start: 20100501
  5. METHOTREXATE [Suspect]
     Indication: CROHN'S DISEASE
  6. FIORICET [Concomitant]
     Indication: MIGRAINE
  7. GABAPENTIN [Concomitant]
     Indication: DRUG USE FOR UNKNOWN INDICATION
  8. URSODIOL [Concomitant]
     Indication: ULCER HAEMORRHAGE
  9. OMEPRAZOLE [Concomitant]
     Indication: ULCER HAEMORRHAGE

REACTIONS (14)
  - ABDOMINAL PAIN [None]
  - ABORTION SPONTANEOUS [None]
  - ANXIETY [None]
  - CROHN'S DISEASE [None]
  - DIARRHOEA [None]
  - DYSMENORRHOEA [None]
  - DYSSTASIA [None]
  - ENDOMETRIOSIS [None]
  - FALL [None]
  - FATIGUE [None]
  - LOSS OF CONSCIOUSNESS [None]
  - OSTEOPOROSIS [None]
  - PNEUMONIA [None]
  - VAGINAL HAEMORRHAGE [None]
